FAERS Safety Report 4840336-3 (Version None)
Quarter: 2005Q4

REPORT INFORMATION
  Report Type: 
  Country: None (occurrence: None)
  Receive Date: 20051025
  Receipt Date: 20050628
  Transmission Date: 20060501
  Serious: Yes (Hospitalization, Other)
  Sender: FDA-Public Use
  Company Number: HQWYE810729JUN05

PATIENT
  Age: 55 Year
  Sex: Male

DRUGS (4)
  1. RAPAMUNE [Suspect]
     Indication: RENAL TRANSPLANT
     Dosage: 2 MG 1X PER 1 DAY, ORAL; 4 MG 1X PER 1 DAY,ORAL
     Route: 048
     Dates: start: 20031101, end: 20041001
  2. RAPAMUNE [Suspect]
     Indication: RENAL TRANSPLANT
     Dosage: 2 MG 1X PER 1 DAY, ORAL; 4 MG 1X PER 1 DAY,ORAL
     Route: 048
     Dates: start: 20041001, end: 20050201
  3. CORTICOSTEROIDS (CORTICOSTEROIDS) [Concomitant]
  4. CYCLOSPORINE [Concomitant]

REACTIONS (1)
  - DIARRHOEA [None]
